FAERS Safety Report 13855920 (Version 1)
Quarter: 2017Q3

REPORT INFORMATION
  Report Type: Spontaneous
  Country: GR (occurrence: GR)
  Receive Date: 20170810
  Receipt Date: 20170810
  Transmission Date: 20171127
  Serious: Yes (Other)
  Sender: FDA-Public Use
  Company Number: GR-ALLERGAN-1734122US

PATIENT
  Sex: Female

DRUGS (5)
  1. CITALOPRAM HYDROBROMIDE - BP [Suspect]
     Active Substance: CITALOPRAM HYDROBROMIDE
     Indication: PRODUCT USED FOR UNKNOWN INDICATION
     Dosage: UNK
     Route: 065
  2. MEDROL [Suspect]
     Active Substance: METHYLPREDNISOLONE
     Indication: RASH
     Route: 065
  3. XANAX [Suspect]
     Active Substance: ALPRAZOLAM
     Dosage: DECREASED TO 1/4 IN THE MORNING
     Route: 065
  4. XANAX [Suspect]
     Active Substance: ALPRAZOLAM
     Indication: PRODUCT USED FOR UNKNOWN INDICATION
     Dosage: 0.5 MG HALF A TABLET IN THEMORNING, HALF OF A TABLET AT NOON AND HALF OF A TABLET AT NIGH
     Route: 065
  5. XANAX [Suspect]
     Active Substance: ALPRAZOLAM
     Dosage: AFTER 5 DAYS ANOTHER 1/4 AT NOON.
     Route: 065

REACTIONS (6)
  - Muscle spasms [Unknown]
  - Glaucoma [Unknown]
  - Drug use disorder [Unknown]
  - Hepatic steatosis [Unknown]
  - Hepatic enzyme increased [Unknown]
  - Anxiety [Unknown]
